FAERS Safety Report 23451237 (Version 1)
Quarter: 2024Q1

REPORT INFORMATION
  Report Type: Spontaneous
  Country: FR (occurrence: FR)
  Receive Date: 20240129
  Receipt Date: 20240129
  Transmission Date: 20240410
  Serious: Yes (Hospitalization)
  Sender: FDA-Public Use
  Company Number: None

PATIENT
  Age: 52 Year
  Sex: Female
  Weight: 169 kg

DRUGS (4)
  1. LYRICA [Suspect]
     Active Substance: PREGABALIN
     Indication: Pain
     Dosage: 150 MILLIGRAM, QD (50 MG MORNING, NOON AND EVENING)
     Route: 048
     Dates: start: 202305
  2. IMATINIB [Suspect]
     Active Substance: IMATINIB
     Indication: Mast cell activation syndrome
     Dosage: 200 MILLIGRAM, QD
     Route: 048
     Dates: start: 202108, end: 20240103
  3. DESLORATADINE [Suspect]
     Active Substance: DESLORATADINE
     Indication: Mast cell activation syndrome
     Dosage: 5 MILLIGRAM, QD
     Route: 048
  4. WARFARIN SODIUM [Suspect]
     Active Substance: WARFARIN SODIUM
     Indication: Thrombosis prophylaxis
     Dosage: 8 MILLIGRAM, QD
     Route: 048
     Dates: start: 2021

REACTIONS (3)
  - Asthenia [Recovering/Resolving]
  - Coombs negative haemolytic anaemia [Recovering/Resolving]
  - Dyspnoea [Recovering/Resolving]

NARRATIVE: CASE EVENT DATE: 20231201
